FAERS Safety Report 9166417 (Version 1)
Quarter: 2013Q1

REPORT INFORMATION
  Report Type: Spontaneous
  Country: CA (occurrence: CA)
  Receive Date: 20130315
  Receipt Date: 20130315
  Transmission Date: 20140127
  Serious: Yes (Other)
  Sender: FDA-Public Use
  Company Number: CA-ROCHE-1201836

PATIENT
  Age: 49 Year
  Sex: Female

DRUGS (1)
  1. XOLAIR [Suspect]
     Indication: ASTHMA
     Route: 058
     Dates: start: 20130308

REACTIONS (7)
  - Headache [Unknown]
  - Erythema [Unknown]
  - Swelling face [Unknown]
  - Dyspnoea [Unknown]
  - Blood pressure increased [Unknown]
  - Respiration abnormal [Unknown]
  - Chest discomfort [Unknown]
